FAERS Safety Report 24587970 (Version 1)
Quarter: 2024Q4

REPORT INFORMATION
  Report Type: Spontaneous
  Country: IT (occurrence: IT)
  Receive Date: 20241107
  Receipt Date: 20241107
  Transmission Date: 20250114
  Serious: Yes (Other)
  Sender: MYLAN
  Company Number: None

PATIENT
  Age: 75 Year
  Sex: Male

DRUGS (11)
  1. NORVASC [Suspect]
     Active Substance: AMLODIPINE BESYLATE
     Indication: Hypertensive heart disease
     Dosage: 1 DOSAGE FORM, QD (14 TABLETS 10 MG, 1 TABLET/DAY IN THE EVENING (POSSIBLE INTERACTING DRUG NO 1))
     Route: 048
  2. NORVASC [Suspect]
     Active Substance: AMLODIPINE BESYLATE
     Indication: Arteriosclerosis
  3. NORVASC [Suspect]
     Active Substance: AMLODIPINE BESYLATE
     Indication: Arterial stenosis
  4. ELIQUIS [Suspect]
     Active Substance: APIXABAN
     Indication: Atrial fibrillation
     Dosage: 2 DOSAGE FORM, QD (60 COATED TABLETS 5 MG - DOSAGE SCHEDULE: 2 TABLETS/DAY (SUSPECTED DRUG))
     Route: 048
  5. PANTOPRAZOLE SODIUM [Suspect]
     Active Substance: PANTOPRAZOLE SODIUM
     Indication: Gastrooesophageal reflux disease
     Dosage: 1 DOSAGE FORM, QD (28 TABLETS 40 MG, 1 TABLET/DAY IN THE MORNING (POSSIBLE INTERACTING DRUG NO. 2)
     Route: 048
  6. INDAPAMIDE [Concomitant]
     Active Substance: INDAPAMIDE
     Indication: Hypertensive heart disease
     Dosage: 1 DOSAGE FORM, QD (30 TABLETS 1.5 MG PROLONGED RELEASE ? 1 TABLET/DAY AT LUNCH)
     Route: 048
  7. OLMESARTAN MEDOXOMIL [Concomitant]
     Active Substance: OLMESARTAN MEDOXOMIL
     Indication: Hypertensive heart disease
     Dosage: 1 DOSAGE FORM, QD (28 COATED TABLETS 40 MG ? 1 TABLET/DAY IN THE MORNING)
     Route: 048
  8. CALCIFEDIOL [Concomitant]
     Active Substance: CALCIFEDIOL
     Indication: Osteoporosis
     Dosage: QD (10 ML1.5 MG/10 ML ? 10 DROPS/DAY)
     Route: 048
  9. ALLOPURINOL [Concomitant]
     Active Substance: ALLOPURINOL
     Indication: Hyperuricaemia
     Dosage: 0.5 DOSAGE FORM, QD (30 TABLETS 300 MG ? ? TABLET/DAY)
     Route: 048
  10. ATORVASTATIN [Concomitant]
     Active Substance: ATORVASTATIN
     Indication: Hypercholesterolaemia
     Dosage: 1 DOSAGE FORM, QD (30 COATED TABLETS 20 MG ? 1 TABLET/DAY IN THE EVENING)
     Route: 048
  11. LASIX [Concomitant]
     Active Substance: FUROSEMIDE
     Indication: Hypertensive heart disease
     Dosage: 1 DOSAGE FORM, QD (30 TABLETS 25 MG? 1 TABLET/DAY)
     Route: 048

REACTIONS (2)
  - Chronic kidney disease [Unknown]
  - Haematuria [Recovered/Resolved]

NARRATIVE: CASE EVENT DATE: 20231001
